FAERS Safety Report 5521784-5 (Version None)
Quarter: 2007Q4

REPORT INFORMATION
  Report Type: 
  Country: None (occurrence: None)
  Receive Date: 20071120
  Receipt Date: 20071115
  Transmission Date: 20080405
  Serious: Yes (Other)
  Sender: FDA-Public Use
  Company Number: FR-WYE-G00625107

PATIENT
  Sex: Male

DRUGS (1)
  1. SIROLIMUS [Suspect]
     Dosage: UNKNOWN
     Route: 048
     Dates: end: 20071117

REACTIONS (1)
  - LUNG DISORDER [None]
